FAERS Safety Report 10992230 (Version 4)
Quarter: 2016Q1

REPORT INFORMATION
  Report Type: Spontaneous
  Country: FR (occurrence: FR)
  Receive Date: 20150406
  Receipt Date: 20160104
  Transmission Date: 20160525
  Serious: Yes (Death, Hospitalization)
  Sender: FDA-Public Use
  Company Number: PHHY2015FR036316

PATIENT
  Age: 58 Year
  Sex: Male

DRUGS (11)
  1. AMIKACIN [Suspect]
     Active Substance: AMIKACIN
     Indication: PYREXIA
     Route: 065
  2. PIPERACILLIN, TAZOBACTAM [Suspect]
     Active Substance: PIPERACILLIN SODIUM\TAZOBACTAM SODIUM
     Indication: PYREXIA
     Route: 065
  3. CICLOSPORIN [Suspect]
     Active Substance: CYCLOSPORINE
     Indication: PROPHYLAXIS AGAINST GRAFT VERSUS HOST DISEASE
  4. CEFTAZIDIME. [Suspect]
     Active Substance: CEFTAZIDIME
     Indication: PYREXIA
     Route: 065
  5. CICLOSPORIN [Suspect]
     Active Substance: CYCLOSPORINE
     Indication: STEM CELL TRANSPLANT
     Dosage: 3 MG/KG, QD
     Route: 065
  6. CYCLOPHOSPHAMIDE. [Suspect]
     Active Substance: CYCLOPHOSPHAMIDE
     Indication: STEM CELL TRANSPLANT
     Route: 065
  7. ANTITHYMOCYTE IMMUNOGLOBULIN (RABBIT) [Suspect]
     Active Substance: LAPINE T-LYMPHOCYTE IMMUNE GLOBULIN
     Indication: STEM CELL TRANSPLANT
     Route: 065
  8. MYCOPHENOLATE MOFETIL. [Suspect]
     Active Substance: MYCOPHENOLATE MOFETIL
     Indication: STEM CELL TRANSPLANT
     Dosage: 15 MG/KG, QD
     Route: 065
  9. CIPROFLOXACIN. [Suspect]
     Active Substance: CIPROFLOXACIN
     Indication: PROTEUS TEST POSITIVE
     Route: 065
  10. MYCOPHENOLATE MOFETIL. [Suspect]
     Active Substance: MYCOPHENOLATE MOFETIL
     Indication: PROPHYLAXIS AGAINST GRAFT VERSUS HOST DISEASE
  11. IMIPENEM [Suspect]
     Active Substance: IMIPENEM
     Indication: PYREXIA
     Route: 065

REACTIONS (12)
  - Aspergillus infection [Fatal]
  - Clostridium difficile colitis [Unknown]
  - Pyrexia [Unknown]
  - Acute graft versus host disease [Fatal]
  - Diarrhoea [Unknown]
  - Infectious colitis [Unknown]
  - Hypoxia [Unknown]
  - Rash erythematous [Unknown]
  - Dyspnoea [Unknown]
  - Hallucination [Unknown]
  - Vomiting [Unknown]
  - Rash [Unknown]
